FAERS Safety Report 4359639-4 (Version None)
Quarter: 2004Q2

REPORT INFORMATION
  Report Type: 
  Country: None (occurrence: None)
  Receive Date: 20040513
  Receipt Date: 20040504
  Transmission Date: 20050107
  Serious: No
  Sender: FDA-Public Use
  Company Number: 04P-028-0259932-00

PATIENT
  Sex: Female

DRUGS (3)
  1. BIAXIN [Suspect]
     Dosage: PER ORAL
  2. CARBAMAZEPINE [Concomitant]
  3. ETHOSUXIMIDE [Concomitant]

REACTIONS (1)
  - FACE OEDEMA [None]
